FAERS Safety Report 8802170 (Version 2)
Quarter: 2015Q2

REPORT INFORMATION
  Report Type: Report from Study
  Country: US (occurrence: US)
  Receive Date: 20120921
  Receipt Date: 20150616
  Transmission Date: 20150821
  Serious: Yes (Death)
  Sender: FDA-Public Use
  Company Number: US-ROCHE-1122992

PATIENT
  Sex: Female

DRUGS (8)
  1. INSULIN [Concomitant]
     Active Substance: INSULIN NOS
  2. CARBOPLATIN. [Concomitant]
     Active Substance: CARBOPLATIN
  3. ALTEPLASE [Concomitant]
     Active Substance: ALTEPLASE
     Route: 065
  4. PACLITAXEL. [Concomitant]
     Active Substance: PACLITAXEL
  5. AVASTIN [Suspect]
     Active Substance: BEVACIZUMAB
     Indication: BRAIN NEOPLASM MALIGNANT
  6. AVASTIN [Suspect]
     Active Substance: BEVACIZUMAB
     Indication: BRAIN NEOPLASM MALIGNANT
     Route: 042
     Dates: start: 20051004
  7. KEPPRA [Concomitant]
     Active Substance: LEVETIRACETAM
  8. CELEBREX [Concomitant]
     Active Substance: CELECOXIB

REACTIONS (2)
  - Death [Fatal]
  - Off label use [Unknown]
